FAERS Safety Report 24687400 (Version 1)
Quarter: 2024Q4

REPORT INFORMATION
  Report Type: Spontaneous
  Country: PT (occurrence: PT)
  Receive Date: 20241202
  Receipt Date: 20241202
  Transmission Date: 20250115
  Serious: Yes (Other)
  Sender: MYLAN
  Company Number: None

PATIENT
  Age: 22 Year
  Sex: Female
  Weight: 117 kg

DRUGS (4)
  1. PREGABALIN [Suspect]
     Active Substance: PREGABALIN
     Indication: Anxiety disorder
     Dosage: 75 MILLIGRAM, QD (1 TABLET AT NIGHT)
     Route: 048
     Dates: start: 20241001, end: 20241029
  2. SERTRALINE [Suspect]
     Active Substance: SERTRALINE HYDROCHLORIDE
     Indication: Anxiety disorder
     Dosage: 100 MILLIGRAM, QD (1 TABLET AT BREAKFAST)
     Route: 048
     Dates: start: 20241001, end: 20241029
  3. ETONOGESTREL [Concomitant]
     Active Substance: ETONOGESTREL
     Dosage: 68 MILLIGRAM, 1 CYCLE
     Route: 058
     Dates: start: 20210801, end: 20240801
  4. LORAZEPAM [Concomitant]
     Active Substance: LORAZEPAM
     Dosage: 2.5 MILLIGRAM
     Route: 048

REACTIONS (1)
  - Uterine haemorrhage [Recovered/Resolved]

NARRATIVE: CASE EVENT DATE: 20241003
